FAERS Safety Report 7269316-8 (Version None)
Quarter: 2011Q1

REPORT INFORMATION
  Report Type: 
  Country: None (occurrence: None)
  Receive Date: 20110202
  Receipt Date: 20110118
  Transmission Date: 20110831
  Serious: Yes (Hospitalization, Other)
  Sender: FDA-Public Use
  Company Number: US-CELGENEUS-163-21880-11011961

PATIENT
  Sex: Female

DRUGS (15)
  1. ASPIRIN [Concomitant]
     Route: 048
     Dates: start: 20100930
  2. FISH OIL [Concomitant]
     Dosage: 340-1000MG
     Route: 048
     Dates: start: 20100930
  3. VENTOLIN HFA [Concomitant]
     Route: 055
     Dates: start: 20100930
  4. REVLIMID [Suspect]
     Indication: MULTIPLE MYELOMA
     Route: 048
     Dates: start: 20100902
  5. AMIODARONE [Concomitant]
     Route: 048
     Dates: start: 20100930
  6. TESSALON [Concomitant]
     Indication: COUGH
     Route: 048
     Dates: start: 20100930
  7. DEXAMETHASONE [Concomitant]
     Route: 048
     Dates: start: 20100930
  8. AMLODIPINE [Concomitant]
     Route: 048
     Dates: start: 20100930
  9. PROTONIX [Concomitant]
     Route: 048
     Dates: start: 20100930
  10. CALCIUM 600 + D [Concomitant]
     Dosage: (1,500)-200 UNIT
     Route: 048
     Dates: start: 20100930
  11. REVLIMID [Suspect]
     Route: 048
     Dates: start: 20101201, end: 20110114
  12. CENTRUM SILVER [Concomitant]
     Route: 048
     Dates: start: 20100930
  13. LUTEIN [Concomitant]
     Route: 048
     Dates: start: 20100930
  14. VITAMIN-MINERAL COMPOUND TAB [Concomitant]
     Dosage: 7,160 UNIT-113MG-100 UNIT
     Route: 048
     Dates: start: 20100930
  15. LEVOXYL [Concomitant]
     Route: 048
     Dates: start: 20100930

REACTIONS (4)
  - THROMBOSIS [None]
  - BLOOD GLUCOSE INCREASED [None]
  - PNEUMONIA [None]
  - ANAEMIA [None]
